FAERS Safety Report 19879423 (Version 2)
Quarter: 2023Q1

REPORT INFORMATION
  Report Type: Spontaneous
  Country: DK (occurrence: DK)
  Receive Date: 20210924
  Receipt Date: 20230116
  Transmission Date: 20230417
  Serious: Yes (Life-Threatening, Hospitalization, Congenital Anomaly)
  Sender: FDA-Public Use
  Company Number: None

PATIENT
  Sex: Male
  Weight: 3.68 kg

DRUGS (2)
  1. SERTRALINE [Suspect]
     Active Substance: SERTRALINE HYDROCHLORIDE
     Indication: Foetal exposure during pregnancy
     Dosage: MATERNAL DOSE: 200 MG, QD
     Route: 064
  2. QUETIAPINE [Suspect]
     Active Substance: QUETIAPINE
     Indication: Foetal exposure during pregnancy
     Dosage: MATERNAL DOSE: 50 MG, QD
     Route: 064

REACTIONS (3)
  - Apnoea [Recovered/Resolved]
  - Foetal exposure during pregnancy [Unknown]
  - Tachypnoea [Recovering/Resolving]

NARRATIVE: CASE EVENT DATE: 20210901
